FAERS Safety Report 8359266-8 (Version None)
Quarter: 2012Q2

REPORT INFORMATION
  Report Type: 
  Country: None (occurrence: None)
  Receive Date: 20120515
  Receipt Date: 20120501
  Transmission Date: 20120825
  Serious: Yes (Other)
  Sender: FDA-Public Use
  Company Number: JP-RANBAXY-2012RR-56154

PATIENT
  Age: 86 Year
  Sex: Female

DRUGS (6)
  1. ROSUVASTATIN [Interacting]
     Indication: LOW DENSITY LIPOPROTEIN INCREASED
     Dosage: 2.5 MG/DAY
     Route: 065
  2. DULOXETINE HYDROCHLORIDE [Interacting]
     Indication: DEPRESSION
     Dosage: 60 MG/DAY
     Route: 065
  3. BROTIZOLAM [Suspect]
     Indication: DEPRESSION
     Dosage: UNK
     Route: 065
  4. DONEPEZIL HCL [Interacting]
     Indication: DEMENTIA
     Dosage: 3 MG/DAY
     Route: 065
  5. DONEPEZIL HCL [Interacting]
     Dosage: 5 MG/DAY
     Route: 065
  6. DONEPEZIL HCL [Interacting]
     Dosage: UNK

REACTIONS (2)
  - DELIRIUM [None]
  - DRUG INTERACTION [None]
